FAERS Safety Report 23912960 (Version 1)
Quarter: 2024Q2

REPORT INFORMATION
  Report Type: Report from Study
  Country: CA (occurrence: CA)
  Receive Date: 20240529
  Receipt Date: 20240529
  Transmission Date: 20240716
  Serious: Yes (Hospitalization)
  Sender: FDA-Public Use
  Company Number: CA-HORIZON THERAPEUTICS-HZN-2022-003528

PATIENT
  Age: 1 Week
  Sex: Male
  Weight: 12.8 kg

DRUGS (9)
  1. RAVICTI [Suspect]
     Active Substance: GLYCEROL PHENYLBUTYRATE
     Indication: Urea cycle disorder
     Dosage: 0.20 MG, QID
     Route: 048
     Dates: start: 20220326
  2. RAVICTI [Suspect]
     Active Substance: GLYCEROL PHENYLBUTYRATE
     Indication: Argininosuccinate lyase deficiency
     Dosage: 5.1 MG, QID
     Route: 048
  3. RAVICTI [Suspect]
     Active Substance: GLYCEROL PHENYLBUTYRATE
     Dosage: 0.71 DURING HOSPITAL ADMISSION
     Route: 065
     Dates: start: 202311
  4. RAVICTI [Suspect]
     Active Substance: GLYCEROL PHENYLBUTYRATE
     Dosage: 0.51 MG, QID
     Route: 065
     Dates: start: 20231227
  5. AMMONUL [Concomitant]
     Active Substance: SODIUM BENZOATE\SODIUM PHENYLACETATE
     Indication: Product used for unknown indication
     Dosage: UNK
     Route: 042
  6. ARGININE [Concomitant]
     Active Substance: ARGININE
     Indication: Product used for unknown indication
     Dosage: UNK
     Route: 042
  7. ARGININE [Concomitant]
     Active Substance: ARGININE
     Dosage: 0.49 , G. QID (POWDER) (161 MG.KG.DAY)
     Route: 048
  8. ARGININE [Concomitant]
     Active Substance: ARGININE
     Dosage: 0.175 G, QID (89.6 MG/KG/DAY)
     Route: 065
  9. VITAMIN D [Concomitant]
     Active Substance: VITAMIN D NOS
     Dosage: 400 IU PER DAY
     Route: 065

REACTIONS (4)
  - Hepatic function abnormal [Recovering/Resolving]
  - Ammonia increased [Recovered/Resolved]
  - Off label use [Unknown]
  - Rhinorrhoea [Unknown]

NARRATIVE: CASE EVENT DATE: 20220326
